FAERS Safety Report 5349288-3 (Version None)
Quarter: 2007Q2

REPORT INFORMATION
  Report Type: 
  Country: None (occurrence: None)
  Receive Date: 20070607
  Receipt Date: 20070605
  Transmission Date: 20071010
  Serious: Yes (Other)
  Sender: FDA-Public Use
  Company Number: A0654453A

PATIENT
  Age: 53 Year
  Sex: Male
  Weight: 68 kg

DRUGS (4)
  1. VALTREX [Suspect]
     Indication: HERPES VIRUS INFECTION
     Dosage: 500MG TWICE PER DAY
     Route: 048
     Dates: start: 20070406
  2. PREDNISOLONE ACETATE [Concomitant]
     Dates: start: 20070301
  3. BRIMONIDINE TARTRATE [Concomitant]
     Dates: start: 20070301
  4. TIMOLOL MALEATE [Concomitant]
     Dates: start: 20070301

REACTIONS (4)
  - APATHY [None]
  - DEPRESSION [None]
  - DYSPNOEA [None]
  - FATIGUE [None]
